FAERS Safety Report 10447626 (Version 1)
Quarter: 2014Q3

REPORT INFORMATION
  Report Type: Spontaneous
  Country: ES (occurrence: ES)
  Receive Date: 20140911
  Receipt Date: 20140911
  Transmission Date: 20150326
  Serious: Yes (Hospitalization)
  Sender: FDA-Public Use
  Company Number: ES-009507513-1409ESP004279

PATIENT
  Sex: Female

DRUGS (1)
  1. LOVASTATIN. [Suspect]
     Active Substance: LOVASTATIN

REACTIONS (1)
  - Drug-induced liver injury [Unknown]
